FAERS Safety Report 8402551-1 (Version None)
Quarter: 2012Q2

REPORT INFORMATION
  Report Type: 
  Country: None (occurrence: None)
  Receive Date: 20120601
  Receipt Date: 20120530
  Transmission Date: 20120825
  Serious: Yes (Hospitalization)
  Sender: FDA-Public Use
  Company Number: PHHY2012DE046497

PATIENT
  Sex: Male
  Weight: 65 kg

DRUGS (2)
  1. BACLOFEN [Concomitant]
     Indication: MUSCLE SPASTICITY
     Dosage: 25 MG, PRN
     Route: 048
     Dates: start: 20110930, end: 20111019
  2. GILENYA [Suspect]
     Indication: MULTIPLE SCLEROSIS
     Dosage: 0.5 MG, QD
     Route: 048
     Dates: start: 20111005

REACTIONS (2)
  - MUSCLE SPASMS [None]
  - PAIN [None]
